FAERS Safety Report 9924939 (Version 1)
Quarter: 2014Q1

REPORT INFORMATION
  Report Type: Spontaneous
  Country: US (occurrence: None)
  Receive Date: 20140224
  Receipt Date: 20140224
  Transmission Date: 20141002
  Serious: Yes (Hospitalization)
  Sender: FDA-Public Use
  Company Number: None

PATIENT
  Age: 57 Year
  Sex: Male
  Weight: 82 kg

DRUGS (15)
  1. DECITABINE [Suspect]
     Indication: ACUTE MYELOID LEUKAEMIA
     Dosage: 20MG/M2; QDX5; 28DAYCYCLE
     Dates: start: 20130712, end: 20140217
  2. ACETAMINOPHEN [Concomitant]
  3. ACYCLOVIR [Concomitant]
  4. AMLODIPINE BESYLATE [Concomitant]
  5. BENAZEPRIL HCI [Concomitant]
  6. AMICAR [Concomitant]
  7. CLONAZEPAM [Concomitant]
  8. KLOR-CON M20 [Concomitant]
  9. MAGNESIUM [Concomitant]
  10. NEXIUM [Concomitant]
  11. PROCHLORPERAZINE MALEATE [Concomitant]
  12. OXYCODONE HCI [Concomitant]
  13. SUCRALFATE [Concomitant]
  14. TRAZADONE HCI [Concomitant]
  15. VORICONAZOLE [Concomitant]

REACTIONS (2)
  - Procedural pain [None]
  - Acute myeloid leukaemia recurrent [None]
